FAERS Safety Report 8989669 (Version 2)
Quarter: 2012Q4

REPORT INFORMATION
  Report Type: 
  Country: US (occurrence: US)
  Receive Date: 20121030
  Receipt Date: 20121030
  Transmission Date: 20130627
  Serious: Yes (Hospitalization, Other)
  Sender: FDA-Public Use
  Company Number: US-009507513-2012SP010349

PATIENT
  Sex: Female

DRUGS (3)
  1. VICTRELIS [Suspect]
     Indication: HEPATITIS C
     Dosage: UNK UNK, Unknown
     Dates: start: 20120217
  2. COPEGUS [Suspect]
     Indication: HEPATITIS C
     Dosage: UNK
     Dates: start: 20120123
  3. PEGASYS [Suspect]
     Indication: HEPATITIS C
     Dosage: UNK UNK, Unknown
     Route: 065
     Dates: start: 20120123

REACTIONS (3)
  - Blood sodium decreased [Unknown]
  - Head injury [Unknown]
  - Fall [Unknown]
